FAERS Safety Report 23180346 (Version 2)
Quarter: 2023Q4

REPORT INFORMATION
  Report Type: Report from Study
  Country: US (occurrence: US)
  Receive Date: 20231114
  Receipt Date: 20231123
  Transmission Date: 20240110
  Serious: Yes (Hospitalization)
  Sender: FDA-Public Use
  Company Number: US-REGENERON PHARMACEUTICALS, INC.-2023-134422

PATIENT
  Age: 70 Year
  Sex: Female

DRUGS (3)
  1. CEMIPLIMAB [Suspect]
     Active Substance: CEMIPLIMAB
     Indication: Non-small cell lung cancer metastatic
     Dosage: 350 MG, Q3W
     Route: 042
     Dates: start: 20230824
  2. ALIROCUMAB [Suspect]
     Active Substance: ALIROCUMAB
     Indication: Non-small cell lung cancer metastatic
     Dosage: 150 MG, Q2W
     Route: 058
     Dates: start: 20230824, end: 20231023
  3. APIXABAN [Concomitant]
     Active Substance: APIXABAN
     Indication: Product used for unknown indication
     Dosage: UNK

REACTIONS (1)
  - Adrenal insufficiency [Recovered/Resolved with Sequelae]

NARRATIVE: CASE EVENT DATE: 20231101
